FAERS Safety Report 22648130 (Version 1)
Quarter: 2023Q2

REPORT INFORMATION
  Report Type: Spontaneous
  Country: FR (occurrence: FR)
  Receive Date: 20230628
  Receipt Date: 20230628
  Transmission Date: 20230722
  Serious: Yes (Life-Threatening)
  Sender: FDA-Public Use
  Company Number: None

PATIENT
  Age: 43 Year
  Sex: Male
  Weight: 71 kg

DRUGS (16)
  1. ETOPOSIDE PHOSPHATE [Suspect]
     Active Substance: ETOPOSIDE PHOSPHATE
     Indication: Extragonadal primary germ cell tumour mixed stage III
     Dosage: FOR PARENTERAL USE, FIRST CYCLE OF BEP
     Route: 042
     Dates: start: 20221114, end: 20221114
  2. ETOPOSIDE PHOSPHATE [Suspect]
     Active Substance: ETOPOSIDE PHOSPHATE
     Indication: Extragonadal primary germ cell tumour mixed stage III
     Dosage: 1ST CYCLE, D1-J2-J3
     Route: 042
     Dates: start: 20221122
  3. ETOPOSIDE PHOSPHATE [Suspect]
     Active Substance: ETOPOSIDE PHOSPHATE
     Indication: Extragonadal primary germ cell tumour mixed stage III
     Dosage: 2ND CYCLE, D1 TO D5
     Route: 042
     Dates: start: 20221212
  4. ETOPOSIDE PHOSPHATE [Suspect]
     Active Substance: ETOPOSIDE PHOSPHATE
     Indication: Extragonadal primary germ cell tumour mixed stage III
     Dosage: 3RD CYCLE, D1 TO D5
     Route: 042
     Dates: start: 20230102
  5. ETOPOSIDE PHOSPHATE [Suspect]
     Active Substance: ETOPOSIDE PHOSPHATE
     Indication: Extragonadal primary germ cell tumour mixed stage III
     Dosage: 4TH CYCLE, D1 TO D5
     Route: 042
     Dates: start: 20230123
  6. ETOPOSIDE PHOSPHATE [Suspect]
     Active Substance: ETOPOSIDE PHOSPHATE
     Indication: Extragonadal primary germ cell tumour mixed stage III
     Dosage: 5TH CYCLE, D1 TO D5
     Route: 042
     Dates: start: 20230213
  7. ETOPOSIDE PHOSPHATE [Suspect]
     Active Substance: ETOPOSIDE PHOSPHATE
     Indication: Extragonadal primary germ cell tumour mixed stage III
     Dosage: 6TH CYCLE, D1 TO D5
     Route: 042
     Dates: start: 20230306
  8. BLEOMYCIN SULFATE [Suspect]
     Active Substance: BLEOMYCIN SULFATE
     Indication: Extragonadal primary germ cell tumour mixed stage III
     Route: 042
     Dates: start: 20221114, end: 20221114
  9. BLEOMYCIN SULFATE [Suspect]
     Active Substance: BLEOMYCIN SULFATE
     Indication: Extragonadal primary germ cell tumour mixed stage III
     Dosage: D1-J8-J15
     Route: 042
     Dates: start: 20221122
  10. CISPLATIN [Suspect]
     Active Substance: CISPLATIN
     Indication: Extragonadal primary germ cell tumour mixed stage III
     Route: 042
     Dates: start: 20221114, end: 20221114
  11. AUBAGIO [Suspect]
     Active Substance: TERIFLUNOMIDE
     Indication: Multiple sclerosis
     Dosage: COATED TABLET
     Route: 048
     Dates: start: 201604, end: 20221121
  12. CARBOPLATIN [Concomitant]
     Active Substance: CARBOPLATIN
     Dosage: 1ST CYCLE, D1
     Dates: start: 20221122
  13. CARBOPLATIN [Concomitant]
     Active Substance: CARBOPLATIN
     Dosage: 2ND CYCLE, D1
     Dates: start: 20221212
  14. CARBOPLATIN [Concomitant]
     Active Substance: CARBOPLATIN
     Dosage: 3RD CYCLE, D1
     Dates: start: 20230102
  15. CARBOPLATIN [Concomitant]
     Active Substance: CARBOPLATIN
     Dosage: 4TH CYCLE, D1
     Dates: start: 20230123
  16. CARBOPLATIN [Concomitant]
     Active Substance: CARBOPLATIN
     Dosage: 6TH CYCLE, D1
     Dates: start: 20230306

REACTIONS (3)
  - Dilated cardiomyopathy [Not Recovered/Not Resolved]
  - Acute pulmonary oedema [Unknown]
  - Acute coronary syndrome [Unknown]

NARRATIVE: CASE EVENT DATE: 20221114
